FAERS Safety Report 5713089-4 (Version None)
Quarter: 2008Q2

REPORT INFORMATION
  Report Type: 
  Country: None (occurrence: None)
  Receive Date: 20080422
  Receipt Date: 20080417
  Transmission Date: 20081010
  Serious: Yes (Life-Threatening, Other)
  Sender: FDA-Public Use
  Company Number: PHEH2008US03852

PATIENT
  Sex: Female

DRUGS (5)
  1. MUSCLE RELAXANTS [Suspect]
  2. HEART MEDICATION [Concomitant]
  3. STOMACH MEDICATION [Concomitant]
  4. EFFEXOR [Concomitant]
  5. TEGRETOL-XR [Suspect]
     Dosage: 200 MG, UNK
     Route: 048
     Dates: start: 20080401

REACTIONS (8)
  - EYE MOVEMENT DISORDER [None]
  - HEAD BANGING [None]
  - HEADACHE [None]
  - INTENTIONAL SELF-INJURY [None]
  - MECHANICAL VENTILATION [None]
  - MENTAL STATUS CHANGES [None]
  - RESPIRATORY ARREST [None]
  - SUICIDE ATTEMPT [None]
